FAERS Safety Report 14324882 (Version 2)
Quarter: 2018Q1

REPORT INFORMATION
  Report Type: Spontaneous
  Country: AU (occurrence: AU)
  Receive Date: 20171226
  Receipt Date: 20180109
  Transmission Date: 20180509
  Serious: Yes (Other)
  Sender: FDA-Public Use
  Company Number: AU-TEVA-2017-AU-835992

PATIENT
  Age: 9 Decade
  Sex: Female

DRUGS (15)
  1. CICLOSPORIN [Suspect]
     Active Substance: CYCLOSPORINE
     Indication: PUSTULAR PSORIASIS
     Dosage: AGAIN GIVEN IN 2009 THEN IN 2010 WITH SAME DOSE
     Route: 065
     Dates: start: 200809
  2. USTEKINUMAB [Suspect]
     Active Substance: USTEKINUMAB
     Indication: PUSTULAR PSORIASIS
     Route: 065
     Dates: start: 201102
  3. THALIDOMIDE [Concomitant]
     Active Substance: THALIDOMIDE
     Indication: PUSTULAR PSORIASIS
     Route: 065
     Dates: start: 2010
  4. ADALIMUMAB [Concomitant]
     Active Substance: ADALIMUMAB
     Indication: PUSTULAR PSORIASIS
     Dosage: 40 MG EVERY FORTNIGHTLY
     Route: 058
     Dates: start: 200902
  5. TIOGUANINE [Concomitant]
     Active Substance: THIOGUANINE ANHYDROUS
     Indication: PUSTULAR PSORIASIS
     Route: 065
     Dates: start: 2009
  6. ACITRETIN. [Suspect]
     Active Substance: ACITRETIN
     Indication: PUSTULAR PSORIASIS
     Dosage: 25 MG DAILY
     Route: 065
     Dates: start: 2008
  7. METHOTREXATE. [Suspect]
     Active Substance: METHOTREXATE
     Indication: PUSTULAR PSORIASIS
     Dosage: 7.5 MG/WEEK IN 2008. LATER, AGAIN STARTED AT THE SAME DOSAGE IN 2009VIA ORAL;HOWEVER, AGAIN STOPPED.
     Route: 065
     Dates: start: 2008
  8. FUROSEMIDE. [Concomitant]
     Active Substance: FUROSEMIDE
     Route: 065
  9. POTASSIUM [Concomitant]
     Active Substance: POTASSIUM
     Route: 065
  10. METFORMIN [Concomitant]
     Active Substance: METFORMIN HYDROCHLORIDE
     Route: 065
  11. FOLIC ACID. [Concomitant]
     Active Substance: FOLIC ACID
     Dosage: 5 MG; IN 2009 SHE AGAIN RECEIVED FOLIC ACID AT THE SAME DOSE
     Route: 065
     Dates: start: 2008
  12. CICLOSPORIN [Suspect]
     Active Substance: CYCLOSPORINE
     Indication: PUSTULAR PSORIASIS
     Route: 065
     Dates: start: 201102
  13. PREDNISOLONE. [Suspect]
     Active Substance: PREDNISOLONE
     Indication: PUSTULAR PSORIASIS
     Dosage: IN FEBRUARY 2011, SHE AGAIN RECEIVED PREDNISOLONE AT UNKNOWN DOSE
     Route: 065
     Dates: start: 2010
  14. INFLIXIMAB [Concomitant]
     Active Substance: INFLIXIMAB
     Indication: PUSTULAR PSORIASIS
     Dosage: 5 MG/KG 8 WEEKLY
     Route: 065
     Dates: start: 2010
  15. LISINOPRIL. [Concomitant]
     Active Substance: LISINOPRIL
     Route: 065

REACTIONS (6)
  - Renal impairment [Unknown]
  - Hypertension [Unknown]
  - Back pain [Recovered/Resolved]
  - Blood creatinine increased [Unknown]
  - Nausea [Unknown]
  - Transaminases increased [Unknown]

NARRATIVE: CASE EVENT DATE: 2008
